FAERS Safety Report 13149830 (Version 6)
Quarter: 2017Q1

REPORT INFORMATION
  Report Type: Report from Study
  Country: US (occurrence: US)
  Receive Date: 20170125
  Receipt Date: 20170330
  Transmission Date: 20170428
  Serious: Yes (Hospitalization, Other)
  Sender: FDA-Public Use
  Company Number: US-JNJFOC-20161213423

PATIENT
  Age: 69 Year
  Sex: Male

DRUGS (1)
  1. IMBRUVICA [Suspect]
     Active Substance: IBRUTINIB
     Indication: CHRONIC LYMPHOCYTIC LEUKAEMIA
     Route: 048
     Dates: start: 20160926

REACTIONS (10)
  - Blood pressure systolic increased [Not Recovered/Not Resolved]
  - Rash [Recovered/Resolved]
  - Angina pectoris [Recovering/Resolving]
  - Influenza [Not Recovered/Not Resolved]
  - Coronary artery occlusion [Recovering/Resolving]
  - Drug dose omission [Recovered/Resolved]
  - Rash papular [Recovered/Resolved]
  - White blood cell count abnormal [Not Recovered/Not Resolved]
  - Epistaxis [Not Recovered/Not Resolved]
  - Constipation [Recovering/Resolving]

NARRATIVE: CASE EVENT DATE: 2016
